FAERS Safety Report 11782021 (Version 4)
Quarter: 2016Q1

REPORT INFORMATION
  Report Type: Spontaneous
  Country: GB (occurrence: GB)
  Receive Date: 20151126
  Receipt Date: 20160331
  Transmission Date: 20160525
  Serious: Yes (Death, Hospitalization)
  Sender: FDA-Public Use
  Company Number: GB-009507513-1511GBR011916

PATIENT
  Age: 87 Year
  Sex: Female

DRUGS (1)
  1. KEYTRUDA [Suspect]
     Active Substance: PEMBROLIZUMAB
     Indication: MALIGNANT MELANOMA
     Dosage: UNK, CYCLICAL
     Dates: start: 20151111

REACTIONS (19)
  - Vomiting [Fatal]
  - Fatigue [Fatal]
  - Confusional state [Fatal]
  - Abnormal faeces [Unknown]
  - Constipation [Fatal]
  - Nausea [Fatal]
  - Diarrhoea [Fatal]
  - Back pain [Fatal]
  - General physical health deterioration [Unknown]
  - Hypophagia [Fatal]
  - Urinary incontinence [Fatal]
  - Malaise [Unknown]
  - Decreased appetite [Fatal]
  - Speech disorder [Unknown]
  - Fall [Fatal]
  - Balance disorder [Fatal]
  - Abdominal pain upper [Fatal]
  - Lethargy [Unknown]
  - Somnolence [Fatal]

NARRATIVE: CASE EVENT DATE: 201511
